FAERS Safety Report 8935027 (Version 1)
Quarter: 2012Q4

REPORT INFORMATION
  Report Type: 
  Country: NZ (occurrence: NZ)
  Receive Date: 20121129
  Receipt Date: 20121129
  Transmission Date: 20130627
  Serious: Yes (Death)
  Sender: FDA-Public Use
  Company Number: NZ-BAXTER-2012BAX025093

PATIENT
  Age: 63 Year
  Sex: Female

DRUGS (3)
  1. DIANEAL PD-4 PERITONEAL DIALYSIS SOLUTION WITH 2.5% W_V GLUCOSE LOW CA [Suspect]
     Dates: end: 20121123
  2. DIANEAL PD-4 PERITONEAL DIALYSIS SOLUTION WITH 1.5% W_V GLUCOSE LOW CA [Suspect]
     Indication: PERITONEAL DIALYSIS
     Route: 033
     Dates: end: 20121123
  3. DIANEAL PD-4 PERITONEAL DIALYSIS SOLUTION WITH 2.5% W_V GLUCOSE LOW CA [Suspect]
     Indication: PERITONEAL DIALYSIS
     Route: 033
     Dates: end: 20121123

REACTIONS (1)
  - Death [Fatal]
